FAERS Safety Report 15378041 (Version 1)
Quarter: 2018Q3

REPORT INFORMATION
  Report Type: Spontaneous
  Country: GB (occurrence: GB)
  Receive Date: 20180913
  Receipt Date: 20180913
  Transmission Date: 20181010
  Serious: Yes (Other)
  Sender: FDA-Public Use
  Company Number: GB-PFIZER INC-2018365484

PATIENT
  Age: 43 Year
  Sex: Female
  Weight: 79 kg

DRUGS (8)
  1. CLOTRIMAZOLE. [Concomitant]
     Active Substance: CLOTRIMAZOLE
     Dosage: 1 DF, UNK (APPLY 2?3 TIMES/DAY)
     Dates: start: 20180724
  2. FLUCONAZOLE. [Suspect]
     Active Substance: FLUCONAZOLE
     Dosage: 150 MG, UNK
     Dates: start: 20180730
  3. BISOPROLOL [Concomitant]
     Active Substance: BISOPROLOL
     Dosage: 1 DF, 1X/DAY
     Dates: start: 20171103
  4. FLUCLOXACILLIN [Concomitant]
     Active Substance: FLUCLOXACILLIN
     Dosage: 4 DF, 1X/DAY
     Dates: start: 20180531, end: 20180607
  5. PREDNISOLONE. [Concomitant]
     Active Substance: PREDNISOLONE
     Dosage: 40 MG, 1X/DAY(FOR FIVE DAYS)
     Dates: start: 20180529, end: 20180603
  6. RIGEVIDON (28) [Concomitant]
     Dosage: 1 DF, UNK
     Dates: start: 20171103, end: 20180724
  7. TRIMETHOPRIM. [Concomitant]
     Active Substance: TRIMETHOPRIM
     Dosage: 2 DF, 1X/DAY
     Dates: start: 20180719, end: 20180722
  8. CITALOPRAM [Concomitant]
     Active Substance: CITALOPRAM HYDROBROMIDE
     Dosage: 1 DF, 1X/DAY
     Dates: start: 20171103

REACTIONS (2)
  - Angiodermatitis [Recovering/Resolving]
  - Rash erythematous [Recovering/Resolving]

NARRATIVE: CASE EVENT DATE: 20180815
